FAERS Safety Report 13742260 (Version 1)
Quarter: 2017Q3

REPORT INFORMATION
  Report Type: Spontaneous
  Country: JP (occurrence: JP)
  Receive Date: 20170711
  Receipt Date: 20170711
  Transmission Date: 20171127
  Serious: Yes (Life-Threatening, Hospitalization, Other)
  Sender: FDA-Public Use
  Company Number: PHHY2010JP53482

PATIENT
  Age: 77 Year
  Sex: Male
  Weight: 78 kg

DRUGS (6)
  1. MANIDIPINE HYDROCHLORIDE [Concomitant]
     Active Substance: MANIDIPINE HYDROCHLORIDE
  2. MIKELAN LA 2% [Suspect]
     Active Substance: CARTEOLOL HYDROCHLORIDE
     Indication: GLAUCOMA
     Dosage: 1 GTT, QD (IN BOTH EYES)
     Route: 047
     Dates: start: 20090915, end: 20100711
  3. ATEMINON [Concomitant]
  4. AZOPT [Concomitant]
     Active Substance: BRINZOLAMIDE
  5. XALATAN [Concomitant]
     Active Substance: LATANOPROST
     Dosage: UNK
  6. KIRANGA [Concomitant]

REACTIONS (12)
  - Respiratory tract congestion [Unknown]
  - Bradycardia [Recovered/Resolved]
  - Blood pressure diastolic decreased [Unknown]
  - Atrioventricular block second degree [Recovered/Resolved]
  - Respiratory failure [Unknown]
  - Blood urea increased [Unknown]
  - Hyperuricaemia [Unknown]
  - Platelet count decreased [Unknown]
  - Dehydration [Unknown]
  - Nocturnal dyspnoea [Unknown]
  - Cardiac failure [Recovered/Resolved]
  - Asthma [Unknown]

NARRATIVE: CASE EVENT DATE: 20100707
